FAERS Safety Report 7097167-6 (Version None)
Quarter: 2010Q4

REPORT INFORMATION
  Report Type: 
  Country: None (occurrence: None)
  Receive Date: 20101111
  Receipt Date: 20100119
  Transmission Date: 20110411
  Serious: No
  Sender: FDA-Public Use
  Company Number: US-KINGPHARMUSA00001-K201000069

PATIENT
  Age: 30 Year
  Sex: Female
  Weight: 117.91 kg

DRUGS (2)
  1. EMBEDA [Suspect]
     Indication: HEADACHE
     Dosage: 20 MG, SINGLE
     Route: 048
     Dates: start: 20100114, end: 20100114
  2. AMBIEN [Concomitant]
     Indication: SLEEP DISORDER
     Dosage: UNK, PRN
     Route: 048

REACTIONS (4)
  - BLOOD PRESSURE DECREASED [None]
  - DYSPNOEA [None]
  - HEADACHE [None]
  - INSOMNIA [None]
